FAERS Safety Report 18218826 (Version 1)
Quarter: 2020Q3

REPORT INFORMATION
  Report Type: Spontaneous
  Country: US (occurrence: US)
  Receive Date: 20200831
  Receipt Date: 20200831
  Transmission Date: 20201103
  Serious: Yes (Other)
  Sender: FDA-Public Use
  Company Number: None

PATIENT
  Sex: Female
  Weight: 72.57 kg

DRUGS (3)
  1. MELATONIN [Concomitant]
     Active Substance: MELATONIN
  2. NEXPLANON [Suspect]
     Active Substance: ETONOGESTREL
     Dates: start: 20170601, end: 20200812
  3. BALCOLTRA BIRTH CONTROL PILL [Concomitant]

REACTIONS (1)
  - Device dislocation [None]

NARRATIVE: CASE EVENT DATE: 20190109
